FAERS Safety Report 20443368 (Version 1)
Quarter: 2022Q1

REPORT INFORMATION
  Report Type: Spontaneous
  Country: US (occurrence: None)
  Receive Date: 20220207
  Receipt Date: 20220207
  Transmission Date: 20220423
  Serious: No
  Sender: FDA-Public Use
  Company Number: None

PATIENT
  Weight: 93.44 kg

DRUGS (27)
  1. SPRYCEL [Suspect]
     Active Substance: DASATINIB
     Indication: Chronic myeloid leukaemia
     Dosage: FREQUENCY : DAILY;?
     Route: 048
     Dates: start: 20190828
  2. BACTRIM DS [Concomitant]
     Active Substance: SULFAMETHOXAZOLE\TRIMETHOPRIM
  3. SPIRONOLACTONE [Concomitant]
     Active Substance: SPIRONOLACTONE
  4. TESSALON [Concomitant]
     Active Substance: BENZONATATE
  5. TUMS [Concomitant]
     Active Substance: CALCIUM CARBONATE
  6. TYLENOL EXTRA STRENGTH [Concomitant]
     Active Substance: ACETAMINOPHEN
  7. LOTRISONE [Concomitant]
     Active Substance: BETAMETHASONE DIPROPIONATE\CLOTRIMAZOLE
  8. SUCRALFATE [Concomitant]
     Active Substance: SUCRALFATE
  9. HYDROCODONE BITARTRATE AND ACETAMINOPHEN [Concomitant]
     Active Substance: ACETAMINOPHEN\HYDROCODONE BITARTRATE
  10. CYCLOBENZAPRINE [Concomitant]
     Active Substance: CYCLOBENZAPRINE
  11. TRIAMCINOLONE [Concomitant]
     Active Substance: TRIAMCINOLONE
  12. VITAMIN D [Concomitant]
     Active Substance: VITAMIN D NOS
  13. STOOL SOFTNER [Concomitant]
  14. ZOFRAN [Concomitant]
     Active Substance: ONDANSETRON HYDROCHLORIDE
  15. FERROUS SULFATE [Concomitant]
     Active Substance: FERROUS SULFATE
  16. POTASSIUM CHLORIDE [Concomitant]
     Active Substance: POTASSIUM CHLORIDE
  17. ASPIRIN [Concomitant]
     Active Substance: ASPIRIN
  18. MELATONIN [Concomitant]
     Active Substance: MELATONIN
  19. FUROSEMIDE [Concomitant]
     Active Substance: FUROSEMIDE
  20. LORATADINE [Concomitant]
     Active Substance: LORATADINE
  21. FLUTICASONE [Concomitant]
     Active Substance: FLUTICASONE
  22. METOPROLOL SUCCINATE [Concomitant]
     Active Substance: METOPROLOL SUCCINATE
  23. FOLIC ACID [Concomitant]
     Active Substance: FOLIC ACID
  24. ROPINIROLE [Concomitant]
     Active Substance: ROPINIROLE
  25. OMEPRAZOLE [Concomitant]
     Active Substance: OMEPRAZOLE
  26. ATORVASTATIN [Concomitant]
     Active Substance: ATORVASTATIN
  27. MIRALAX [Concomitant]
     Active Substance: POLYETHYLENE GLYCOL 3350

REACTIONS (2)
  - COVID-19 [None]
  - Intermenstrual bleeding [None]
